FAERS Safety Report 19513545 (Version 1)
Quarter: 2021Q3

REPORT INFORMATION
  Report Type: Spontaneous
  Country: US (occurrence: US)
  Receive Date: 20210709
  Receipt Date: 20210709
  Transmission Date: 20211014
  Serious: Yes (Other)
  Sender: FDA-Public Use
  Company Number: US-GLAXOSMITHKLINE-US2021GSK000117

PATIENT
  Sex: Female

DRUGS (7)
  1. ZANTAC [Suspect]
     Active Substance: RANITIDINE HYDROCHLORIDE
     Indication: GASTROOESOPHAGEAL REFLUX DISEASE
     Dosage: 150 MG, QD, DAILY USE RX ZANTAC 1/1998 ? 11/2008; DAILY USE OTC ZANTAC IN CONJUNCTION WITH RX RANITI
     Route: 065
     Dates: start: 199801, end: 202001
  2. RANITIDINE. [Suspect]
     Active Substance: RANITIDINE
     Indication: GASTROOESOPHAGEAL REFLUX DISEASE
     Dosage: 300 MG, QD, DAILY USE 11/2008 ? 1/2015; DAILY USE IN CONJUNCTION WITH OTC ZANTAC 1/2015 ? 11/2019
     Route: 065
     Dates: start: 200811, end: 201911
  3. ZANTAC [Suspect]
     Active Substance: RANITIDINE HYDROCHLORIDE
     Dosage: 300 MG, QD, DAILY USE RX ZANTAC 1/1998 ? 11/2008; DAILY USE OTC ZANTAC IN CONJUNCTION WITH RX RANITI
     Route: 065
     Dates: start: 199801, end: 202001
  4. ZANTAC [Suspect]
     Active Substance: RANITIDINE HYDROCHLORIDE
     Indication: GASTROOESOPHAGEAL REFLUX DISEASE
     Dosage: 150 MG BOTH, DAILY USE RX ZANTAC 1/1998 ? 11/2008; DAILY USE OTC ZANTAC IN CONJUNCTION WITH RX RANIT
     Route: 065
     Dates: start: 199801, end: 202001
  5. ZANTAC [Suspect]
     Active Substance: RANITIDINE HYDROCHLORIDE
     Dosage: 300 MG, QD, DAILY USE RX ZANTAC 1/1998 ? 11/2008; DAILY USE OTC ZANTAC IN CONJUNCTION WITH RX RANITI
     Route: 065
     Dates: start: 199801, end: 202001
  6. RANITIDINE. [Suspect]
     Active Substance: RANITIDINE
     Dosage: UNK
  7. RANITIDINE. [Suspect]
     Active Substance: RANITIDINE
     Indication: GASTROOESOPHAGEAL REFLUX DISEASE
     Dosage: 300 MG, QD, DAILY USE 11/2008 ? 1/2015; DAILY USE IN CONJUNCTION WITH OTC ZANTAC 1/2015 ? 11/2019
     Route: 065
     Dates: start: 200811, end: 201911

REACTIONS (1)
  - Breast cancer [Unknown]
